FAERS Safety Report 15534750 (Version 2)
Quarter: 2018Q4

REPORT INFORMATION
  Report Type: Report from Study
  Country: US (occurrence: US)
  Receive Date: 20181022
  Receipt Date: 20181023
  Transmission Date: 20190205
  Serious: Yes (Life-Threatening, Hospitalization, Other)
  Sender: FDA-Public Use
  Company Number: US-BRISTOL-MYERS SQUIBB COMPANY-BMS-2018-082693

PATIENT
  Age: 72 Year
  Sex: Female
  Weight: 59 kg

DRUGS (2)
  1. IPILIMUMAB [Suspect]
     Active Substance: IPILIMUMAB
     Indication: THYROID CANCER
     Dosage: UNK, Q6WK
     Route: 042
     Dates: start: 20180125
  2. NIVOLUMAB [Suspect]
     Active Substance: NIVOLUMAB
     Indication: THYROID CANCER
     Dosage: UNK, Q2WK
     Route: 042
     Dates: start: 20180108

REACTIONS (18)
  - Bile duct stone [Unknown]
  - Dehydration [Recovering/Resolving]
  - Hypophysitis [Unknown]
  - Urinary tract infection [Unknown]
  - Sepsis [Recovering/Resolving]
  - Lipase increased [Unknown]
  - Cortisol decreased [Unknown]
  - Pneumonia [Unknown]
  - Nausea [Recovering/Resolving]
  - Vomiting [Recovering/Resolving]
  - Respiratory distress [Recovering/Resolving]
  - Pulmonary oedema [Recovering/Resolving]
  - Adrenal insufficiency [Unknown]
  - Bile duct obstruction [Unknown]
  - Hypotension [Recovering/Resolving]
  - Acute kidney injury [Unknown]
  - Fatigue [Recovering/Resolving]
  - Pyrexia [Recovering/Resolving]

NARRATIVE: CASE EVENT DATE: 201809
